FAERS Safety Report 6259950-6 (Version None)
Quarter: 2009Q3

REPORT INFORMATION
  Report Type: 
  Country: None (occurrence: None)
  Receive Date: 20090706
  Receipt Date: 20090706
  Transmission Date: 20100115
  Serious: Yes (Other)
  Sender: FDA-Public Use
  Company Number: None

PATIENT
  Age: 53 Year
  Sex: Male
  Weight: 79.3795 kg

DRUGS (1)
  1. ZYBAN [Suspect]
     Indication: DEPRESSION
     Dates: start: 20030401, end: 20030515

REACTIONS (1)
  - ANGER [None]
